FAERS Safety Report 16357629 (Version 1)
Quarter: 2019Q2

REPORT INFORMATION
  Report Type: Spontaneous
  Country: US (occurrence: US)
  Receive Date: 20190527
  Receipt Date: 20190527
  Transmission Date: 20190711
  Serious: No
  Sender: FDA-Public Use
  Company Number: US-GILEAD-2019-0410078

PATIENT
  Age: 44 Year
  Sex: Female

DRUGS (8)
  1. PRILOSEC [Concomitant]
     Active Substance: OMEPRAZOLE MAGNESIUM
  2. VITAMIN E [Concomitant]
     Active Substance: .ALPHA.-TOCOPHEROL
  3. LEXAPRO [Concomitant]
     Active Substance: ESCITALOPRAM OXALATE
  4. GABAPENTIN. [Concomitant]
     Active Substance: GABAPENTIN
  5. TOPAMAX [Concomitant]
     Active Substance: TOPIRAMATE
  6. CELEBREX [Concomitant]
     Active Substance: CELECOXIB
  7. LIPITOR [Concomitant]
     Active Substance: ATORVASTATIN CALCIUM
  8. EPCLUSA [Suspect]
     Active Substance: SOFOSBUVIR\VELPATASVIR
     Indication: PRODUCT USED FOR UNKNOWN INDICATION
     Dosage: UNK
     Route: 065
     Dates: start: 20190426

REACTIONS (2)
  - Headache [Unknown]
  - Pyrexia [Unknown]
